FAERS Safety Report 5338405-7 (Version None)
Quarter: 2007Q2

REPORT INFORMATION
  Report Type: 
  Country: None (occurrence: None)
  Receive Date: 20070530
  Receipt Date: 20070524
  Transmission Date: 20071010
  Serious: Yes (Hospitalization)
  Sender: FDA-Public Use
  Company Number: JP-ELI_LILLY_AND_COMPANY-JP200705003986

PATIENT
  Age: 42 Year
  Sex: Female
  Weight: 68 kg

DRUGS (3)
  1. HUMATROPE [Suspect]
     Indication: GROWTH HORMONE DEFICIENCY
     Dosage: 0.2 MG, DAILY (1/D)
     Route: 058
     Dates: start: 20070110, end: 20070515
  2. HUMATROPE [Suspect]
     Dosage: 0.1 MG, DAILY (1/D)
     Route: 058
     Dates: start: 20070524
  3. CRESTOR [Concomitant]
     Indication: HYPERCHOLESTEROLAEMIA
     Dosage: 2.5 MG, DAILY (1/D)
     Route: 048
     Dates: start: 20070405

REACTIONS (1)
  - NON-SECRETORY ADENOMA OF PITUITARY [None]
